FAERS Safety Report 5715994-1 (Version None)
Quarter: 2008Q2

REPORT INFORMATION
  Report Type: 
  Country: None (occurrence: None)
  Receive Date: 20080424
  Receipt Date: 20080416
  Transmission Date: 20081010
  Serious: Yes (Other)
  Sender: FDA-Public Use
  Company Number: US-BAYER-200820100NA

PATIENT
  Age: 26 Year
  Sex: Male
  Weight: 96 kg

DRUGS (1)
  1. ULTRAVIST-300 SINGLE USE VIAL [Suspect]
     Indication: COMPUTERISED TOMOGRAM ABDOMEN
     Dosage: AS USED: 140 ML
     Route: 042

REACTIONS (3)
  - DYSPNOEA [None]
  - EYE SWELLING [None]
  - PHARYNGEAL OEDEMA [None]
